FAERS Safety Report 6415598-1 (Version None)
Quarter: 2009Q4

REPORT INFORMATION
  Report Type: 
  Country: None (occurrence: None)
  Receive Date: 20091027
  Receipt Date: 20091020
  Transmission Date: 20100525
  Serious: Yes (Hospitalization)
  Sender: FDA-Public Use
  Company Number: FR-ROCHE-506712

PATIENT
  Sex: Female
  Weight: 37 kg

DRUGS (7)
  1. XELODA [Suspect]
     Dosage: FREQUENCY REPORTED AS X 2/DAY J1-J15, LAST DOSE ORIOR TO SAE: 04 JULY 2007
     Route: 048
     Dates: start: 20070301
  2. BEVACIZUMAB [Suspect]
     Dosage: FREQUENCY REPORTED AS J1-J21, LAST DOSE ORIOR TO SAE: 21 JUNE 2007
     Route: 042
     Dates: start: 20070301
  3. TAXOL [Suspect]
     Dosage: FREQUENCY REPORTED AS J1-J21, LAST DOSE ORIOR TO SAE: 21 JUNE 2007
     Route: 042
     Dates: start: 20070510
  4. GRANOCYTE 34 [Concomitant]
     Dosage: FREQUENCY: ONE INJECTION PER DAY.
     Dates: start: 20070622, end: 20070624
  5. PROZAC [Concomitant]
     Dosage: STARTED BEFORE THE STUDY.
  6. XANAX [Concomitant]
     Dosage: DOSE: 0.50/DAY.
     Dates: start: 20070619, end: 20070621
  7. TRIFLUCAN [Concomitant]
     Dosage: DOSE REGIMEN: 50 X 2/DAY.
     Dates: start: 20070705

REACTIONS (1)
  - GENERAL PHYSICAL HEALTH DETERIORATION [None]
